FAERS Safety Report 24431736 (Version 12)
Quarter: 2025Q1

REPORT INFORMATION
  Report Type: Spontaneous
  Country: DE (occurrence: DE)
  Receive Date: 20241014
  Receipt Date: 20250308
  Transmission Date: 20250408
  Serious: Yes (Life-Threatening, Other)
  Sender: AUROBINDO
  Company Number: DE-SA-2024SA281713

PATIENT
  Age: 16 Year
  Sex: Male
  Weight: 74.95 kg

DRUGS (98)
  1. CARBOPLATIN [Suspect]
     Active Substance: CARBOPLATIN
     Indication: Non-Hodgkin^s lymphoma
     Route: 042
     Dates: start: 20240802
  2. CARBOPLATIN [Suspect]
     Active Substance: CARBOPLATIN
     Route: 042
     Dates: start: 20240802
  3. CARBOPLATIN [Suspect]
     Active Substance: CARBOPLATIN
     Route: 042
     Dates: start: 20240903
  4. HYDROCORTISONE [Suspect]
     Active Substance: HYDROCORTISONE
     Indication: Non-Hodgkin^s lymphoma
     Route: 037
     Dates: start: 20240726
  5. HYDROCORTISONE [Suspect]
     Active Substance: HYDROCORTISONE
     Route: 065
     Dates: start: 20240902
  6. RITUXIMAB [Suspect]
     Active Substance: RITUXIMAB
     Indication: Non-Hodgkin^s lymphoma
     Route: 042
     Dates: start: 20240902
  7. RITUXIMAB [Suspect]
     Active Substance: RITUXIMAB
     Route: 042
     Dates: start: 20240902
  8. RITUXIMAB [Suspect]
     Active Substance: RITUXIMAB
     Route: 042
     Dates: start: 20240902
  9. ETOPOSIDE [Suspect]
     Active Substance: ETOPOSIDE
     Indication: Non-Hodgkin^s lymphoma
     Route: 042
     Dates: start: 20240802
  10. ETOPOSIDE [Suspect]
     Active Substance: ETOPOSIDE
     Route: 042
     Dates: start: 20240802
  11. ETOPOSIDE [Suspect]
     Active Substance: ETOPOSIDE
     Route: 065
     Dates: start: 20240906
  12. METHOTREXATE [Suspect]
     Active Substance: METHOTREXATE
     Indication: Non-Hodgkin^s lymphoma
     Route: 037
     Dates: start: 20240726
  13. METHOTREXATE [Suspect]
     Active Substance: METHOTREXATE
     Route: 037
     Dates: start: 20240902
  14. TOCILIZUMAB [Suspect]
     Active Substance: TOCILIZUMAB
     Indication: Non-Hodgkin^s lymphoma
     Route: 042
     Dates: start: 20240807
  15. TOCILIZUMAB [Suspect]
     Active Substance: TOCILIZUMAB
     Route: 042
     Dates: start: 20240807
  16. IFOSFAMIDE [Suspect]
     Active Substance: IFOSFAMIDE
     Indication: Non-Hodgkin^s lymphoma
     Route: 042
     Dates: start: 20240802
  17. IFOSFAMIDE [Suspect]
     Active Substance: IFOSFAMIDE
     Route: 042
     Dates: start: 20240802
  18. IFOSFAMIDE [Suspect]
     Active Substance: IFOSFAMIDE
     Route: 042
     Dates: start: 20240802
  19. IFOSFAMIDE [Suspect]
     Active Substance: IFOSFAMIDE
     Route: 065
     Dates: start: 20240905
  20. MESNA [Suspect]
     Active Substance: MESNA
     Indication: Non-Hodgkin^s lymphoma
     Route: 042
     Dates: start: 20240802
  21. MESNA [Suspect]
     Active Substance: MESNA
     Route: 042
     Dates: start: 20240802
  22. MESNA [Suspect]
     Active Substance: MESNA
     Route: 065
     Dates: start: 20240906
  23. CYTARABINE [Suspect]
     Active Substance: CYTARABINE
     Indication: Non-Hodgkin^s lymphoma
     Route: 037
     Dates: start: 20240726
  24. CYTARABINE [Suspect]
     Active Substance: CYTARABINE
     Route: 037
     Dates: start: 20240902
  25. OBINUTUZUMAB [Suspect]
     Active Substance: OBINUTUZUMAB
     Indication: Non-Hodgkin^s lymphoma
     Route: 042
     Dates: start: 20240731
  26. OBINUTUZUMAB [Suspect]
     Active Substance: OBINUTUZUMAB
     Route: 042
     Dates: start: 20240731
  27. OBINUTUZUMAB [Suspect]
     Active Substance: OBINUTUZUMAB
     Route: 042
  28. LENOGRASTIM [Suspect]
     Active Substance: LENOGRASTIM
     Indication: Non-Hodgkin^s lymphoma
     Route: 042
     Dates: start: 20240814
  29. LENOGRASTIM [Suspect]
     Active Substance: LENOGRASTIM
     Route: 042
     Dates: start: 20240805
  30. LENOGRASTIM [Suspect]
     Active Substance: LENOGRASTIM
     Route: 042
     Dates: start: 20240805
  31. LENOGRASTIM [Suspect]
     Active Substance: LENOGRASTIM
     Route: 058
     Dates: start: 20240805
  32. COLUMVI [Suspect]
     Active Substance: GLOFITAMAB-GXBM
     Indication: Non-Hodgkin^s lymphoma
     Route: 042
     Dates: start: 20240807
  33. COLUMVI [Suspect]
     Active Substance: GLOFITAMAB-GXBM
     Route: 042
  34. COLUMVI [Suspect]
     Active Substance: GLOFITAMAB-GXBM
     Route: 042
     Dates: start: 20240807
  35. COLUMVI [Suspect]
     Active Substance: GLOFITAMAB-GXBM
     Route: 042
  36. COLUMVI [Suspect]
     Active Substance: GLOFITAMAB-GXBM
     Route: 042
     Dates: start: 20240828
  37. MABTHERA [Suspect]
     Active Substance: RITUXIMAB
     Indication: Non-Hodgkin^s lymphoma
     Route: 042
     Dates: start: 20240902
  38. MABTHERA [Suspect]
     Active Substance: RITUXIMAB
     Route: 042
  39. GLOFITAMAB [Suspect]
     Active Substance: GLOFITAMAB
     Indication: Non-Hodgkin^s lymphoma
     Route: 042
     Dates: start: 20240807
  40. GLOFITAMAB [Suspect]
     Active Substance: GLOFITAMAB
     Route: 042
     Dates: start: 20240828
  41. ACETAMINOPHEN [Concomitant]
     Active Substance: ACETAMINOPHEN
     Indication: Headache
     Route: 042
     Dates: start: 20240727
  42. ACETAMINOPHEN [Concomitant]
     Active Substance: ACETAMINOPHEN
     Route: 042
     Dates: start: 20240727
  43. CAFFEINE [Concomitant]
     Active Substance: CAFFEINE
     Indication: Headache
     Route: 048
     Dates: start: 20240727, end: 20240925
  44. AMPHOTERICIN B [Concomitant]
     Active Substance: AMPHOTERICIN B
     Indication: Product used for unknown indication
     Dosage: 100 MILLIGRAM, 3 TIMES A DAY
     Route: 048
     Dates: start: 20240922
  45. CLEMASTINE [Concomitant]
     Active Substance: CLEMASTINE
     Indication: Product used for unknown indication
     Route: 042
     Dates: start: 20240828, end: 20240902
  46. PLATELETS [Concomitant]
     Active Substance: HUMAN PLATELET, ALLOGENIC
     Indication: Platelet count decreased
     Route: 042
     Dates: start: 20240804
  47. HUMAN RED BLOOD CELL [Concomitant]
     Active Substance: HUMAN RED BLOOD CELL
     Indication: Anaemia
     Route: 042
     Dates: start: 20240805
  48. TRANEXAMIC ACID [Concomitant]
     Active Substance: TRANEXAMIC ACID
     Indication: Epistaxis
     Route: 045
     Dates: start: 20240802
  49. LEVETIRACETAM [Concomitant]
     Active Substance: LEVETIRACETAM
     Indication: Encephalopathy
     Route: 065
  50. LEVETIRACETAM [Concomitant]
     Active Substance: LEVETIRACETAM
     Dosage: 1500 MILLIGRAM, TWO TIMES A DAY
     Route: 042
     Dates: start: 20240903, end: 20240922
  51. LEVETIRACETAM [Concomitant]
     Active Substance: LEVETIRACETAM
     Route: 065
     Dates: start: 20240923, end: 20240923
  52. LEVETIRACETAM [Concomitant]
     Active Substance: LEVETIRACETAM
     Dosage: 500 MILLIGRAM, TWO TIMES A DAY
     Route: 042
     Dates: start: 20240805, end: 20240901
  53. LEVETIRACETAM [Concomitant]
     Active Substance: LEVETIRACETAM
     Dosage: 1000 MILLIGRAM, TWO TIMES A DAY
     Route: 042
     Dates: start: 20240902, end: 20240902
  54. LEVETIRACETAM [Concomitant]
     Active Substance: LEVETIRACETAM
     Indication: Encephalopathy
     Dosage: 1500 MILLIGRAM, ONCE A DAY
     Route: 048
     Dates: start: 20240924
  55. MELATONIN [Concomitant]
     Active Substance: MELATONIN
     Indication: Product used for unknown indication
     Dosage: 5 MILLIGRAM, ONCE A DAY
     Route: 048
     Dates: start: 20240806, end: 20240913
  56. ONDANSETRON [Concomitant]
     Active Substance: ONDANSETRON
     Indication: Prophylaxis of nausea and vomiting
     Dosage: 8 MILLIGRAM, 3 TIMES A DAY
     Route: 042
     Dates: start: 20240902, end: 20240902
  57. ONDANSETRON [Concomitant]
     Active Substance: ONDANSETRON
     Dosage: 8 MILLIGRAM, 3 TIMES A DAY
     Route: 042
     Dates: start: 20240903, end: 20240906
  58. ONDANSETRON [Concomitant]
     Active Substance: ONDANSETRON
     Dosage: 8 MILLIGRAM, 3 TIMES A DAY
     Route: 042
     Dates: start: 20240907, end: 20240907
  59. ONDANSETRON [Concomitant]
     Active Substance: ONDANSETRON
     Dosage: 8 MILLIGRAM, 3 TIMES A DAY
     Route: 042
     Dates: start: 20240902, end: 20240907
  60. SULFAMETHOXAZOLE\TRIMETHOPRIM [Concomitant]
     Active Substance: SULFAMETHOXAZOLE\TRIMETHOPRIM
     Indication: Product used for unknown indication
     Dosage: 640 MILLIGRAM, EVERY WEEK
     Route: 048
     Dates: start: 20240726, end: 20240913
  61. SULFAMETHOXAZOLE\TRIMETHOPRIM [Concomitant]
     Active Substance: SULFAMETHOXAZOLE\TRIMETHOPRIM
     Route: 048
     Dates: start: 20240924
  62. PANTOPRAZOLE [Concomitant]
     Active Substance: PANTOPRAZOLE
     Indication: Product used for unknown indication
     Dosage: 40 MILLIGRAM, ONCE A DAY
     Route: 042
     Dates: start: 20240908, end: 20240915
  63. PANTOPRAZOLE [Concomitant]
     Active Substance: PANTOPRAZOLE
     Dosage: 40 MILLIGRAM, ONCE A DAY
     Route: 042
     Dates: start: 20240917, end: 20240923
  64. PANTOPRAZOLE [Concomitant]
     Active Substance: PANTOPRAZOLE
     Indication: Product used for unknown indication
     Dosage: 40 MILLIGRAM, ONCE A DAY
     Route: 048
     Dates: start: 20240728, end: 20240907
  65. METHYLPREDNISOLONE [Concomitant]
     Active Substance: METHYLPREDNISOLONE
     Indication: Product used for unknown indication
     Route: 042
     Dates: start: 20240428, end: 20240428
  66. Tranexamsaure eberth [Concomitant]
     Indication: Product used for unknown indication
     Route: 065
     Dates: start: 20240812
  67. DEXAMETHASONE [Concomitant]
     Active Substance: DEXAMETHASONE
     Indication: Product used for unknown indication
     Route: 065
     Dates: start: 20241001
  68. DIMENHYDRINATE [Concomitant]
     Active Substance: DIMENHYDRINATE
     Indication: Prophylaxis of nausea and vomiting
     Route: 048
     Dates: start: 20240906, end: 20240906
  69. DIMENHYDRINATE [Concomitant]
     Active Substance: DIMENHYDRINATE
     Indication: Prophylaxis of nausea and vomiting
     Route: 042
     Dates: start: 20240906, end: 20240906
  70. MEROPENEM [Concomitant]
     Active Substance: MEROPENEM
     Indication: Febrile neutropenia
     Dosage: 2 GRAM, ONCE A DAY
     Route: 042
     Dates: start: 20240902, end: 20240902
  71. MEROPENEM [Concomitant]
     Active Substance: MEROPENEM
     Dosage: 2 GRAM, 3 TIMES A DAY
     Route: 042
     Dates: start: 20240815, end: 20240901
  72. TEICOPLANIN [Concomitant]
     Active Substance: TEICOPLANIN
     Indication: Cytokine release syndrome
     Dosage: 400 MILLIGRAM, TWO TIMES A DAY
     Route: 065
     Dates: start: 20240830, end: 20240830
  73. TEICOPLANIN [Concomitant]
     Active Substance: TEICOPLANIN
     Dosage: 400 MILLIGRAM, TWO TIMES A DAY
     Route: 065
     Dates: start: 20240831, end: 20240902
  74. Naloxona [Concomitant]
     Indication: Product used for unknown indication
     Dosage: 0.34 MILLIGRAM, ONCE A DAY
     Route: 042
     Dates: start: 20240808, end: 20240820
  75. Naloxona [Concomitant]
     Dosage: 0.17 MILLIGRAM, ONCE A DAY
     Route: 042
     Dates: start: 20240820, end: 20240821
  76. FILGRASTIM [Concomitant]
     Active Substance: FILGRASTIM
     Indication: Neutropenia
     Dosage: 300 MICROGRAM, ONCE A DAY
     Route: 058
     Dates: start: 20240806, end: 20240806
  77. FILGRASTIM [Concomitant]
     Active Substance: FILGRASTIM
     Dosage: 300 MICROGRAM, ONCE A DAY
     Route: 058
     Dates: start: 20240808, end: 20240812
  78. FILGRASTIM [Concomitant]
     Active Substance: FILGRASTIM
     Dosage: 300 MICROGRAM, ONCE A DAY
     Route: 058
     Dates: start: 20240813, end: 20240823
  79. FILGRASTIM [Concomitant]
     Active Substance: FILGRASTIM
     Dosage: 300 MICROGRAM, ONCE A DAY
     Route: 058
     Dates: start: 20240825, end: 20240826
  80. FILGRASTIM [Concomitant]
     Active Substance: FILGRASTIM
     Dosage: 300 MICROGRAM, ONCE A DAY
     Route: 058
     Dates: start: 20240912, end: 20240927
  81. FILGRASTIM [Concomitant]
     Active Substance: FILGRASTIM
     Dosage: 600 MICROGRAM, ONCE A DAY
     Route: 058
     Dates: start: 20240928
  82. TRAMADOL [Concomitant]
     Active Substance: TRAMADOL
     Indication: Pain
     Route: 048
     Dates: start: 20240829, end: 20240829
  83. TRAMADOL [Concomitant]
     Active Substance: TRAMADOL
     Route: 048
     Dates: start: 20240830, end: 20241001
  84. TRAMADOL [Concomitant]
     Active Substance: TRAMADOL
     Indication: Pain
     Route: 042
     Dates: start: 20240911, end: 20240913
  85. TRAMADOL [Concomitant]
     Active Substance: TRAMADOL
     Indication: Pain
     Route: 048
     Dates: start: 20240929, end: 20240930
  86. TRANEXAMIC ACID [Concomitant]
     Active Substance: TRANEXAMIC ACID
     Indication: Epistaxis
     Dosage: 500 MILLIGRAM, 3 TIMES A DAY
     Route: 042
     Dates: start: 20240814, end: 20240820
  87. TRANEXAMIC ACID [Concomitant]
     Active Substance: TRANEXAMIC ACID
     Dosage: 500 MILLIGRAM, TWO TIMES A DAY
     Route: 042
     Dates: start: 20240821, end: 20240821
  88. IBUPROFEN [Concomitant]
     Active Substance: IBUPROFEN
     Indication: Pain
     Route: 048
     Dates: start: 20240905, end: 20240905
  89. METAMIZOLE [Concomitant]
     Active Substance: METAMIZOLE
     Indication: Product used for unknown indication
     Route: 042
     Dates: start: 20240815, end: 20240916
  90. MICAFUNGIN [Concomitant]
     Active Substance: MICAFUNGIN SODIUM
     Indication: Product used for unknown indication
     Route: 042
     Dates: start: 20240809, end: 20240830
  91. MICAFUNGIN [Concomitant]
     Active Substance: MICAFUNGIN SODIUM
     Route: 042
     Dates: start: 20240910, end: 20240913
  92. MICAFUNGIN [Concomitant]
     Active Substance: MICAFUNGIN SODIUM
     Dosage: 400 MILLIGRAM WEEK
     Route: 042
     Dates: start: 20240918, end: 20240918
  93. MICAFUNGIN [Concomitant]
     Active Substance: MICAFUNGIN SODIUM
     Dosage: 400 MILLIGRAM WEEK
     Route: 042
     Dates: start: 20240910, end: 20240913
  94. MICAFUNGIN [Concomitant]
     Active Substance: MICAFUNGIN SODIUM
     Dosage: 400 MILLIGRAM WEEK
     Route: 042
     Dates: start: 20240916, end: 20240917
  95. TRAMADOL [Concomitant]
     Active Substance: TRAMADOL
     Indication: Pain
     Dosage: 100 MILLIGRAM, TWO TIMES A DAY
     Route: 048
     Dates: start: 20240930
  96. HYDROMORPHONE [Suspect]
     Active Substance: HYDROMORPHONE
     Indication: Product used for unknown indication
     Route: 042
     Dates: start: 20240913, end: 20240918
  97. HYDROMORPHONE [Suspect]
     Active Substance: HYDROMORPHONE
     Route: 042
     Dates: start: 20240918, end: 20240921
  98. HYDROMORPHONE [Suspect]
     Active Substance: HYDROMORPHONE
     Route: 042
     Dates: start: 20240808, end: 20240823

REACTIONS (3)
  - Sepsis [Recovered/Resolved]
  - Febrile neutropenia [Not Recovered/Not Resolved]
  - Off label use [Unknown]

NARRATIVE: CASE EVENT DATE: 20240916
